FAERS Safety Report 8090675-0 (Version None)
Quarter: 2012Q1

REPORT INFORMATION
  Report Type: 
  Country: None (occurrence: None)
  Receive Date: 20120129
  Receipt Date: 20111208
  Transmission Date: 20120608
  Serious: No
  Sender: FDA-Public Use
  Company Number: US-ABBOTT-11P-163-0881938-00

PATIENT
  Age: 62 Year
  Sex: Male

DRUGS (26)
  1. FLOVENT [Concomitant]
     Indication: BRONCHITIS
  2. LANTUS [Concomitant]
     Dosage: SLIDING SCALE IN PM
  3. PANTOPRAZOLE [Concomitant]
     Indication: DYSPEPSIA
  4. HUMALOG [Concomitant]
     Dosage: SLIDING SCALE QPM
  5. LIPITOR [Concomitant]
     Indication: BLOOD CHOLESTEROL
     Dosage: AT NIGHT
  6. NIACIN [Concomitant]
     Indication: PRODUCT USED FOR UNKNOWN INDICATION
     Dosage: AT NIGHT
  7. TRAZODONE HCL [Concomitant]
     Indication: INSOMNIA
     Dosage: AT BEDTIME
  8. FENOFIBRATE [Concomitant]
     Indication: CARDIAC DISORDER
  9. ISOSORBIDE MONONITRATE [Concomitant]
     Indication: CARDIAC DISORDER
  10. MAGNESIUM [Concomitant]
     Indication: PRODUCT USED FOR UNKNOWN INDICATION
  11. ALBUTEROL [Concomitant]
     Indication: BRONCHITIS
  12. ASPIRIN [Concomitant]
     Indication: PRODUCT USED FOR UNKNOWN INDICATION
  13. GABAPENTIN [Concomitant]
     Indication: SLEEP DISORDER
     Dosage: AT NIGHT
  14. HUMALOG [Concomitant]
     Indication: DIABETES MELLITUS
     Dosage: IN AM
  15. METOPROROLOL [Concomitant]
     Indication: CARDIAC DISORDER
  16. GABAPENTIN [Concomitant]
     Indication: FEELING OF RELAXATION
     Dosage: IN THE MORNING
  17. LANTUS [Concomitant]
     Indication: PRODUCT USED FOR UNKNOWN INDICATION
     Dosage: IN AM
  18. HUMIRA [Suspect]
     Indication: RHEUMATOID ARTHRITIS
     Dates: start: 20100401
  19. CYCLOBENZAPRINE [Concomitant]
     Indication: MUSCLE RELAXANT THERAPY
  20. FLONASE [Concomitant]
     Indication: PRODUCT USED FOR UNKNOWN INDICATION
  21. NITROGLYCERIN [Concomitant]
     Indication: CHEST PAIN
  22. OXYCODONE HCL [Concomitant]
     Indication: PAIN
  23. TESTOSTERONE [Concomitant]
     Indication: PRODUCT USED FOR UNKNOWN INDICATION
     Route: 050
  24. AMBIEN [Concomitant]
     Indication: INSOMNIA
  25. FOLIC ACID [Concomitant]
     Indication: PRODUCT USED FOR UNKNOWN INDICATION
  26. IRON [Concomitant]
     Indication: PRODUCT USED FOR UNKNOWN INDICATION

REACTIONS (2)
  - ACNE [None]
  - PAIN [None]
